FAERS Safety Report 24738374 (Version 1)
Quarter: 2024Q4

REPORT INFORMATION
  Report Type: Spontaneous
  Country: FR (occurrence: FR)
  Receive Date: 20241216
  Receipt Date: 20241216
  Transmission Date: 20250115
  Serious: Yes (Hospitalization)
  Sender: PFIZER
  Company Number: None

PATIENT
  Age: 35 Year
  Sex: Female
  Weight: 51 kg

DRUGS (3)
  1. CARBOPLATIN [Suspect]
     Active Substance: CARBOPLATIN
     Indication: Invasive ductal breast carcinoma
     Dosage: UNK, CYCLIC (2 CYCLES)
     Route: 042
     Dates: start: 20240715, end: 20240917
  2. PEMBROLIZUMAB [Suspect]
     Active Substance: PEMBROLIZUMAB
     Indication: Invasive ductal breast carcinoma
     Dosage: UNK, CYCLIC (1 CYCLE)
     Route: 042
     Dates: start: 20240715, end: 20240715
  3. TAXOL [Suspect]
     Active Substance: PACLITAXEL
     Indication: Invasive ductal breast carcinoma
     Dosage: UNK, CYCLIC (2 CYCLES)
     Route: 042
     Dates: start: 20240715, end: 20240917

REACTIONS (2)
  - Rash maculo-papular [Recovering/Resolving]
  - Off label use [Unknown]

NARRATIVE: CASE EVENT DATE: 20240715
